FAERS Safety Report 4777481-7 (Version None)
Quarter: 2005Q3

REPORT INFORMATION
  Report Type: 
  Country: None (occurrence: None)
  Receive Date: 20050915
  Receipt Date: 20050831
  Transmission Date: 20060218
  Serious: Yes (Death, Other)
  Sender: FDA-Public Use
  Company Number: USA0508105509

PATIENT
  Sex: Male

DRUGS (2)
  1. FORTEO [Suspect]
     Dates: start: 20041001, end: 20041001
  2. OXYGEN [Concomitant]

REACTIONS (3)
  - CARDIAC DISORDER [None]
  - EMPHYSEMA [None]
  - LUNG DISORDER [None]
